FAERS Safety Report 17758542 (Version 3)
Quarter: 2020Q2

REPORT INFORMATION
  Report Type: Spontaneous
  Country: FR (occurrence: FR)
  Receive Date: 20200508
  Receipt Date: 20200606
  Transmission Date: 20200714
  Serious: Yes (Other)
  Sender: FDA-Public Use
  Company Number: FR-AUROBINDO-AUR-APL-2020-023889

PATIENT
  Age: 72 Year
  Sex: Male

DRUGS (4)
  1. HALOPERIDOL. [Suspect]
     Active Substance: HALOPERIDOL
     Indication: BIPOLAR II DISORDER
     Dosage: 10 MILLIGRAM
     Route: 065
  2. OLANZAPINE. [Suspect]
     Active Substance: OLANZAPINE
     Indication: BIPOLAR II DISORDER
     Dosage: 20 MILLIGRAM
     Route: 005
  3. PHENELZINE [Suspect]
     Active Substance: PHENELZINE
     Indication: BIPOLAR II DISORDER
     Dosage: 45 MILLIGRAM, ONCE A DAY
     Route: 065
  4. LAMOTRIGINE 200MG [Suspect]
     Active Substance: LAMOTRIGINE
     Indication: BIPOLAR II DISORDER
     Dosage: 200 MILLIGRAM
     Route: 065

REACTIONS (3)
  - Cognitive disorder [Unknown]
  - Dementia with Lewy bodies [Unknown]
  - Malignant catatonia [Unknown]
